FAERS Safety Report 8301060-8 (Version None)
Quarter: 2012Q2

REPORT INFORMATION
  Report Type: 
  Country: None (occurrence: None)
  Receive Date: 20120420
  Receipt Date: 20120416
  Transmission Date: 20120825
  Serious: Yes (Hospitalization)
  Sender: FDA-Public Use
  Company Number: DE-SANOFI-AVENTIS-2011SA032689

PATIENT
  Age: 68 Year
  Sex: Female
  Weight: 78 kg

DRUGS (14)
  1. DIOVAN HCT [Concomitant]
     Route: 048
  2. TAGAMET [Concomitant]
     Indication: PREMEDICATION
     Route: 042
     Dates: start: 20110523, end: 20110523
  3. LEVOTHYROXINE SODIUM [Concomitant]
     Route: 048
  4. ALISKIREN [Concomitant]
     Route: 048
  5. METO ^ISIS^ [Concomitant]
     Dosage: 1/2/ DAY
     Route: 048
     Dates: start: 20110530
  6. ACETYLSALICYLIC ACID SRT [Concomitant]
     Route: 048
  7. DOXAZOSIN MESYLATE [Concomitant]
     Route: 048
  8. DOCETAXEL [Suspect]
     Route: 041
     Dates: start: 20110523, end: 20110523
  9. CLEMASTINE [Concomitant]
     Indication: PREMEDICATION
     Route: 042
     Dates: start: 20110523, end: 20110523
  10. GRANISETRON HYDROCHLORIDE [Concomitant]
     Indication: PREMEDICATION
     Route: 042
     Dates: start: 20110523, end: 20110523
  11. DOCETAXEL [Suspect]
     Indication: BREAST CANCER
     Route: 041
  12. SPIRONOLACTONE [Concomitant]
     Route: 048
  13. SIMVASTATIN [Concomitant]
     Route: 048
  14. DEXAMETHASONE [Concomitant]
     Indication: PREMEDICATION
     Route: 048
     Dates: start: 20110522, end: 20110525

REACTIONS (1)
  - CARDIOVASCULAR EVENT PROPHYLAXIS [None]
